FAERS Safety Report 7754839-5 (Version None)
Quarter: 2011Q3

REPORT INFORMATION
  Report Type: 
  Country: None (occurrence: None)
  Receive Date: 20110916
  Receipt Date: 20110912
  Transmission Date: 20111222
  Serious: No
  Sender: FDA-Public Use
  Company Number: US-BIOGENIDEC-2011BI023413

PATIENT
  Sex: Female

DRUGS (3)
  1. TYSABRI [Suspect]
     Indication: MULTIPLE SCLEROSIS
     Route: 042
     Dates: start: 20080731, end: 20081001
  2. TYSABRI [Suspect]
     Route: 042
     Dates: start: 20110601
  3. COPAXONE [Concomitant]
     Indication: PRODUCT USED FOR UNKNOWN INDICATION

REACTIONS (9)
  - FEELING ABNORMAL [None]
  - FATIGUE [None]
  - URTICARIA [None]
  - FEELING COLD [None]
  - INJECTION SITE PRURITUS [None]
  - VOMITING [None]
  - INJECTION SITE VESICLES [None]
  - MASS [None]
  - PANIC ATTACK [None]
